FAERS Safety Report 6931370-8 (Version None)
Quarter: 2010Q3

REPORT INFORMATION
  Report Type: 
  Country: None (occurrence: None)
  Receive Date: 20100819
  Receipt Date: 20100809
  Transmission Date: 20110219
  Serious: Yes (Other)
  Sender: FDA-Public Use
  Company Number: AR-JNJFOC-20100804831

PATIENT
  Sex: Female

DRUGS (1)
  1. IBUPIRAC [Suspect]
     Indication: PAIN
     Dosage: HAS TAKEN FOR YEARS
     Route: 048

REACTIONS (1)
  - CHOLELITHIASIS [None]
